FAERS Safety Report 8288966-3 (Version None)
Quarter: 2012Q2

REPORT INFORMATION
  Report Type: 
  Country: None (occurrence: None)
  Receive Date: 20120417
  Receipt Date: 20120411
  Transmission Date: 20120825
  Serious: Yes (Life-Threatening)
  Sender: FDA-Public Use
  Company Number: CA-SANOFI-AVENTIS-2010SA049620

PATIENT
  Age: 75 Year
  Sex: Male
  Weight: 78 kg

DRUGS (17)
  1. LEVOTHYROXINE SODIUM [Concomitant]
  2. ARTHROTEC [Concomitant]
  3. ENALAPRIL MALEATE [Concomitant]
  4. GLYBURIDE [Concomitant]
  5. ZANTAC [Concomitant]
  6. SOLOSTAR [Suspect]
  7. ROSUVASTATIN CALCIUM [Concomitant]
  8. VIADERM-KC [Concomitant]
  9. ALL OTHER THERAPEUTIC PRODUCTS [Concomitant]
  10. SOLOSTAR [Suspect]
  11. ASPIRIN [Concomitant]
  12. APIDRA SOLOSTAR [Suspect]
     Indication: TYPE 2 DIABETES MELLITUS
     Route: 058
  13. LANTUS [Suspect]
     Indication: TYPE 2 DIABETES MELLITUS
     Route: 058
  14. METOPROLOL [Concomitant]
  15. METFORMIN HCL [Concomitant]
  16. GLYCERYL TRINITRATE [Concomitant]
  17. VITAMIN B-12 [Concomitant]

REACTIONS (5)
  - HYPOGLYCAEMIC UNCONSCIOUSNESS [None]
  - LOSS OF CONSCIOUSNESS [None]
  - ROAD TRAFFIC ACCIDENT [None]
  - NECK PAIN [None]
  - MUSCULOSKELETAL PAIN [None]
